FAERS Safety Report 25466688 (Version 1)
Quarter: 2025Q2

REPORT INFORMATION
  Report Type: Spontaneous
  Country: JP (occurrence: None)
  Receive Date: 20250623
  Receipt Date: 20250623
  Transmission Date: 20250717
  Serious: Yes (Hospitalization)
  Sender: ORION
  Company Number: JP-Orion Corporation ORION PHARMA-ENTC2025-0079

PATIENT
  Age: 79 Year
  Sex: Female

DRUGS (1)
  1. STALEVO [Suspect]
     Active Substance: CARBIDOPA\ENTACAPONE\LEVODOPA
     Indication: Parkinson^s disease

REACTIONS (3)
  - Infectious pleural effusion [Unknown]
  - Circumstance or information capable of leading to medication error [Unknown]
  - Dysphagia [Unknown]
